FAERS Safety Report 18120358 (Version 2)
Quarter: 2020Q3

REPORT INFORMATION
  Report Type: Spontaneous
  Country: GB (occurrence: GB)
  Receive Date: 20200806
  Receipt Date: 20200831
  Transmission Date: 20201103
  Serious: Yes (Disabling)
  Sender: FDA-Public Use
  Company Number: GB-ASCEND THERAPEUTICS US, LLC-2088258

PATIENT
  Age: 58 Year
  Sex: Female
  Weight: 64 kg

DRUGS (6)
  1. ESTROGEL [Suspect]
     Active Substance: ESTRADIOL
     Indication: MENOPAUSE
     Route: 061
     Dates: start: 20200608, end: 20200703
  2. OESTRODOSE (ESTRADIOL)?INDICATION FOR USE: MENOPAUSE [Suspect]
     Active Substance: ESTRADIOL
     Route: 061
     Dates: start: 20200608, end: 20200703
  3. UTROGESTAN (MICRONIZED PROGESTERONE), UNKNOWN [Concomitant]
     Route: 065
  4. LIOTHYRONINE (LIOTHYRONINE), UNKNOWN [Concomitant]
  5. LEVOTHYROXINE. [Concomitant]
     Active Substance: LEVOTHYROXINE
  6. ESTROGEL [Suspect]
     Active Substance: ESTRADIOL

REACTIONS (6)
  - Mood swings [Unknown]
  - Anxiety [Unknown]
  - Drug ineffective [Unknown]
  - Vaginal haemorrhage [Unknown]
  - Menopausal symptoms [Recovering/Resolving]
  - Product substitution issue [Unknown]

NARRATIVE: CASE EVENT DATE: 20200611
